FAERS Safety Report 5482213-3 (Version None)
Quarter: 2007Q4

REPORT INFORMATION
  Report Type: 
  Country: None (occurrence: None)
  Receive Date: 20071011
  Receipt Date: 20071003
  Transmission Date: 20080405
  Serious: Yes (Death)
  Sender: FDA-Public Use
  Company Number: FR-WYE-H00483207

PATIENT
  Age: 57 Year
  Sex: Female

DRUGS (2)
  1. PROPRANOLOL HYDROCHLORIDE [Suspect]
     Dosage: DOSE AND FREQUENCY NOT SPECIFIED
     Route: 065
  2. MEPROBAMATE [Interacting]
     Dosage: DOSE AND FREQUENCY NOT SPECIFIED
     Route: 065

REACTIONS (1)
  - MULTIPLE DRUG OVERDOSE [None]
